FAERS Safety Report 20650232 (Version 1)
Quarter: 2022Q1

REPORT INFORMATION
  Report Type: Spontaneous
  Country: US (occurrence: US)
  Receive Date: 20220329
  Receipt Date: 20220329
  Transmission Date: 20220423
  Serious: No
  Sender: FDA-Public Use
  Company Number: US-SANOFI-01025257

PATIENT
  Sex: Male

DRUGS (1)
  1. DUPIXENT [Suspect]
     Active Substance: DUPILUMAB
     Indication: Chronic spontaneous urticaria
     Dosage: UNK

REACTIONS (5)
  - Urticaria [Unknown]
  - Product use in unapproved indication [Unknown]
  - Eye disorder [Unknown]
  - Blepharitis [Unknown]
  - Condition aggravated [Unknown]
